FAERS Safety Report 23481741 (Version 1)
Quarter: 2024Q1

REPORT INFORMATION
  Report Type: Spontaneous
  Country: CA (occurrence: None)
  Receive Date: 20240205
  Receipt Date: 20240205
  Transmission Date: 20240409
  Serious: Yes (Other)
  Sender: FDA-Public Use
  Company Number: CA-PFIZER INC-202400029724

PATIENT
  Age: 68 Year

DRUGS (1)
  1. METHOTREXATE [Suspect]
     Active Substance: METHOTREXATE
     Indication: Product used for unknown indication

REACTIONS (4)
  - Uveitis [Not Recovered/Not Resolved]
  - Retinal vasculitis [Not Recovered/Not Resolved]
  - Papilloedema [Not Recovered/Not Resolved]
  - Drug ineffective [Unknown]
